FAERS Safety Report 7933733-0 (Version None)
Quarter: 2011Q4

REPORT INFORMATION
  Report Type: 
  Country: None (occurrence: None)
  Receive Date: 20111122
  Receipt Date: 20111116
  Transmission Date: 20120403
  Serious: No
  Sender: FDA-Public Use
  Company Number: US-PFIZER INC-2011281777

PATIENT
  Sex: Female

DRUGS (1)
  1. NEOSPORIN [Suspect]
     Dosage: UNK
     Route: 061

REACTIONS (3)
  - PRURITUS [None]
  - PAIN [None]
  - ERYTHEMA [None]
